FAERS Safety Report 6899697-6 (Version None)
Quarter: 2010Q3

REPORT INFORMATION
  Report Type: 
  Country: None (occurrence: None)
  Receive Date: 20100803
  Receipt Date: 20100722
  Transmission Date: 20110219
  Serious: Yes (Other)
  Sender: FDA-Public Use
  Company Number: US-RANBAXY-2010US-36223

PATIENT

DRUGS (4)
  1. CALAN SR (VERAPAMIL) [Suspect]
     Indication: HYPERTENSION
     Dosage: UNK, UNK
     Route: 048
  2. VIAGRA [Suspect]
     Indication: ANORGASMIA
     Dosage: 25 MG, UNK
     Route: 048
     Dates: start: 19980601
  3. VIAGRA [Suspect]
     Indication: LOSS OF LIBIDO
  4. PROPYLTHIOURACIL [Concomitant]
     Indication: PRODUCT USED FOR UNKNOWN INDICATION
     Dosage: UNK, UNK
     Route: 065

REACTIONS (4)
  - CHEST PAIN [None]
  - DRUG INTERACTION [None]
  - HYPOTENSION [None]
  - PALPITATIONS [None]
